FAERS Safety Report 12548219 (Version 1)
Quarter: 2016Q3

REPORT INFORMATION
  Report Type: Spontaneous
  Country: US (occurrence: None)
  Receive Date: 20160711
  Receipt Date: 20160711
  Transmission Date: 20161109
  Serious: Yes (Other)
  Sender: FDA-Public Use
  Company Number: None

PATIENT
  Age: 53 Year
  Sex: Male

DRUGS (5)
  1. ATIVAN [Concomitant]
     Active Substance: LORAZEPAM
  2. ISENTRESS [Suspect]
     Active Substance: RALTEGRAVIR POTASSIUM
     Indication: COAGULOPATHY
     Route: 048
     Dates: start: 20150114
  3. LAMIVUDINE/ZIDOVUDINE 150-300MG TABLE STRIDES [Suspect]
     Active Substance: LAMIVUDINE\ZIDOVUDINE
     Indication: COAGULOPATHY
     Dosage: 150-300MG EVERY 12 HOURS ORAL
     Route: 048
     Dates: start: 20150211
  4. COMBIVIR [Concomitant]
     Active Substance: LAMIVUDINE\ZIDOVUDINE
  5. RECOMBINATE [Concomitant]
     Active Substance: ANTIHEMOPHILIC FACTOR, HUMAN RECOMBINANT

REACTIONS (1)
  - Hepatic cancer [None]

NARRATIVE: CASE EVENT DATE: 20160610
